FAERS Safety Report 4868862-1 (Version None)
Quarter: 2005Q4

REPORT INFORMATION
  Report Type: 
  Country: None (occurrence: None)
  Receive Date: 20051229
  Receipt Date: 20050414
  Transmission Date: 20060501
  Serious: Yes (Hospitalization)
  Sender: FDA-Public Use
  Company Number: US-MERCK-0504USA03128

PATIENT
  Age: 78 Year
  Sex: Female
  Weight: 91 kg

DRUGS (2)
  1. VIOXX [Suspect]
     Indication: PAIN
     Route: 048
     Dates: start: 20010601, end: 20031201
  2. VIOXX [Suspect]
     Route: 048
     Dates: start: 20010601, end: 20031201

REACTIONS (1)
  - MYOCARDIAL INFARCTION [None]
